FAERS Safety Report 10535350 (Version 1)
Quarter: 2014Q4

REPORT INFORMATION
  Report Type: Spontaneous
  Country: CN (occurrence: CN)
  Receive Date: 20141022
  Receipt Date: 20141022
  Transmission Date: 20150529
  Serious: Yes (Hospitalization, Other)
  Sender: FDA-Public Use
  Company Number: CN-GLAXOSMITHKLINE-CN2014GSK006947

PATIENT
  Age: 39 Year
  Sex: Female

DRUGS (8)
  1. VENTOLIN [Suspect]
     Active Substance: ALBUTEROL SULFATE
     Indication: ASTHMA
     Dosage: 1 TO 2 PUFFS (WHEN DIASTASE RELAPSE)
     Route: 055
     Dates: start: 2013, end: 2013
  2. TCM (MEDICATION UNKNOWN) [Suspect]
     Active Substance: HERBALS
     Indication: ASTHMA
     Dosage: UNK
  3. SERETIDE [Suspect]
     Active Substance: FLUTICASONE FUROATE\SALMETEROL XINAFOATE
     Indication: ASTHMA
     Dosage: 1 PUFF(S), BID
     Route: 055
     Dates: start: 2013
  4. SERETIDE [Suspect]
     Active Substance: FLUTICASONE FUROATE\SALMETEROL XINAFOATE
     Dosage: 1 PUFF(S), QD
     Route: 055
     Dates: end: 20141011
  5. UNKNOWN ASTHMA INHALER [Suspect]
     Active Substance: UNSPECIFIED INGREDIENT
     Indication: ASTHMA
     Dosage: 1 PUFF(S), BID
     Route: 055
  6. SERETIDE [Suspect]
     Active Substance: FLUTICASONE FUROATE\SALMETEROL XINAFOATE
     Dosage: 1 PUFF(S), QD
     Route: 055
  7. UNKNOWN ASTHMA INHALER [Suspect]
     Active Substance: UNSPECIFIED INGREDIENT
     Dosage: 1 PUFF(S), UNK
     Route: 055
     Dates: start: 20141011
  8. SERETIDE [Suspect]
     Active Substance: FLUTICASONE FUROATE\SALMETEROL XINAFOATE
     Dosage: 1 PUFF(S), BID
     Route: 055
     Dates: start: 201404

REACTIONS (4)
  - Back pain [Not Recovered/Not Resolved]
  - Drug ineffective [Recovered/Resolved]
  - Pneumonia [Recovered/Resolved]
  - Feeling cold [Not Recovered/Not Resolved]

NARRATIVE: CASE EVENT DATE: 2013
